FAERS Safety Report 13916081 (Version 1)
Quarter: 2017Q3

REPORT INFORMATION
  Report Type: Report from Study
  Country: US (occurrence: US)
  Receive Date: 20170829
  Receipt Date: 20170829
  Transmission Date: 20171127
  Serious: No
  Sender: FDA-Public Use
  Company Number: PHEH2017US027270

PATIENT
  Sex: Male

DRUGS (2)
  1. ENTRESTO [Suspect]
     Active Substance: SACUBITRIL\VALSARTAN
     Dosage: 100 MG (49 MG SACUBITRIL AND 51 MG VALSARATAN), UNK
     Route: 048
  2. ENTRESTO [Suspect]
     Active Substance: SACUBITRIL\VALSARTAN
     Indication: PRODUCT USED FOR UNKNOWN INDICATION
     Dosage: 1.5 DF (24 MG SACUBITRIL, 26 MG VALSARTAN), BID (HALF TABLET IN THE MORNING AND FULL TABLET IN THE )
     Route: 065

REACTIONS (3)
  - Visual impairment [Unknown]
  - Hypersensitivity [Unknown]
  - Wrong technique in product usage process [Unknown]
